FAERS Safety Report 17460087 (Version 2)
Quarter: 2021Q1

REPORT INFORMATION
  Report Type: Other
  Country: US (occurrence: US)
  Receive Date: 20200226
  Receipt Date: 20210122
  Transmission Date: 20210419
  Serious: Yes (Other)
  Sender: FDA-Public Use
  Company Number: US-ROCHE-1883203

PATIENT
  Sex: Female

DRUGS (12)
  1. ZELBORAF [Suspect]
     Active Substance: VEMURAFENIB
     Indication: PURPURA
  2. SYNTHROID [Concomitant]
     Active Substance: LEVOTHYROXINE SODIUM
     Route: 048
  3. POTASSIUM CHLORIDE. [Concomitant]
     Active Substance: POTASSIUM CHLORIDE
     Route: 048
  4. TENORMIN [Concomitant]
     Active Substance: ATENOLOL
     Route: 048
  5. CYMBALTA [Concomitant]
     Active Substance: DULOXETINE HYDROCHLORIDE
     Route: 048
  6. LACTOBACILLUS ACIDOPHILUS [Concomitant]
     Active Substance: LACTOBACILLUS ACIDOPHILUS
     Route: 048
  7. DDAVP [Concomitant]
     Active Substance: DESMOPRESSIN ACETATE
     Route: 048
  8. FLONASE [Concomitant]
     Active Substance: FLUTICASONE PROPIONATE
  9. ZELBORAF [Suspect]
     Active Substance: VEMURAFENIB
     Indication: THROMBOCYTOPENIA
     Dosage: TAKE 2 TABLET(S) BY MOUTH TWICE A DAY
     Route: 048
  10. ZELBORAF [Suspect]
     Active Substance: VEMURAFENIB
     Indication: HISTIOCYTOSIS
     Route: 048
     Dates: start: 20161025
  11. ZYRTEC (UNITED STATES) [Concomitant]
     Route: 048
  12. PRILOSEC [Concomitant]
     Active Substance: OMEPRAZOLE MAGNESIUM
     Route: 048

REACTIONS (10)
  - Joint stiffness [Not Recovered/Not Resolved]
  - Cataract [Unknown]
  - Hyperkeratosis [Not Recovered/Not Resolved]
  - Intentional product use issue [Unknown]
  - Retinal haemorrhage [Not Recovered/Not Resolved]
  - Sunburn [Not Recovered/Not Resolved]
  - Diarrhoea [Unknown]
  - Ankle fracture [Unknown]
  - Off label use [Unknown]
  - Stress [Unknown]

NARRATIVE: CASE EVENT DATE: 2019
